FAERS Safety Report 16285790 (Version 1)
Quarter: 2019Q2

REPORT INFORMATION
  Report Type: Spontaneous
  Country: US (occurrence: US)
  Receive Date: 20190508
  Receipt Date: 20190508
  Transmission Date: 20190711
  Serious: No
  Sender: FDA-Public Use
  Company Number: US-009507513-1905USA001296

PATIENT
  Age: 45 Year
  Sex: Male

DRUGS (11)
  1. INTRON A [Suspect]
     Active Substance: INTERFERON ALFA-2B
     Indication: LYMPHADENOPATHY
     Dosage: 0.5ML/3ML, TIW
     Route: 058
     Dates: start: 20190503
  2. CLOBETASOL PROPIONATE. [Concomitant]
     Active Substance: CLOBETASOL PROPIONATE
  3. DOXEPIN HYDROCHLORIDE. [Concomitant]
     Active Substance: DOXEPIN HYDROCHLORIDE
  4. GABAPENTIN. [Concomitant]
     Active Substance: GABAPENTIN
  5. VITAMIN D (UNSPECIFIED) [Concomitant]
     Active Substance: VITAMIN D NOS
  6. CHANTIX [Concomitant]
     Active Substance: VARENICLINE TARTRATE
  7. DICLOXACILLIN [Concomitant]
     Active Substance: DICLOXACILLIN
  8. MUPIROCIN. [Concomitant]
     Active Substance: MUPIROCIN
  9. INTRON A [Suspect]
     Active Substance: INTERFERON ALFA-2B
     Indication: CUTANEOUS T-CELL LYMPHOMA
  10. ALLOPURINOL. [Concomitant]
     Active Substance: ALLOPURINOL
  11. TRIAMCINOLONE [Concomitant]
     Active Substance: TRIAMCINOLONE

REACTIONS (1)
  - Off label use [Unknown]

NARRATIVE: CASE EVENT DATE: 20190503
